FAERS Safety Report 10602674 (Version 4)
Quarter: 2016Q1

REPORT INFORMATION
  Report Type: Spontaneous
  Country: US (occurrence: US)
  Receive Date: 20141124
  Receipt Date: 20160204
  Transmission Date: 20160525
  Serious: Yes (Hospitalization, Other)
  Sender: FDA-Public Use
  Company Number: US-GLAXOSMITHKLINE-US2014GSK025675

PATIENT
  Age: 56 Year
  Sex: Female

DRUGS (3)
  1. IMITREX [Suspect]
     Active Substance: SUMATRIPTAN SUCCINATE
     Dosage: 25 MG, UNK
  2. SUMATRIPTAN. [Suspect]
     Active Substance: SUMATRIPTAN
     Dosage: 20 MG, UNK
  3. IMITREX [Suspect]
     Active Substance: SUMATRIPTAN SUCCINATE
     Indication: MIGRAINE
     Dosage: 20 MG, UNK
     Dates: start: 2009

REACTIONS (5)
  - Gallbladder operation [Unknown]
  - Fall [Unknown]
  - Breast conserving surgery [Unknown]
  - Breast neoplasm [Unknown]
  - Hospitalisation [Unknown]

NARRATIVE: CASE EVENT DATE: 2013
